FAERS Safety Report 12082317 (Version 2)
Quarter: 2016Q1

REPORT INFORMATION
  Report Type: Report from Study
  Country: US (occurrence: US)
  Receive Date: 20160217
  Receipt Date: 20160229
  Transmission Date: 20160526
  Serious: Yes (Death, Other)
  Sender: FDA-Public Use
  Company Number: US-TEVA-635732ACC

PATIENT
  Age: 52 Year
  Sex: Female

DRUGS (4)
  1. BENDAMUSTINE HYDROCHLORIDE [Suspect]
     Active Substance: BENDAMUSTINE HYDROCHLORIDE
     Indication: SMALL CELL LUNG CANCER EXTENSIVE STAGE
     Dosage: 100-120 MG/M2, (DAY 1, 2; REPEATED EVERY 3 WEEKS, FOR THREE CYCLES)
     Route: 042
  2. CARBOPLATIN. [Concomitant]
     Active Substance: CARBOPLATIN
     Indication: SMALL CELL LUNG CANCER EXTENSIVE STAGE
     Dosage: ON DAY 1, REPEATED EVERY 3 WEEKS FOR THREE CYCLES
     Route: 065
  3. IRINOTECAN [Concomitant]
     Active Substance: IRINOTECAN
     Indication: SMALL CELL LUNG CANCER EXTENSIVE STAGE
     Dosage: DAY 1, EVERY 3 WEEKS FOR THREE CYCLES
     Route: 065
  4. ETOPOSIDE. [Concomitant]
     Active Substance: ETOPOSIDE
     Indication: SMALL CELL LUNG CANCER EXTENSIVE STAGE
     Dosage: ON DAY 1,2,3 REPEATED EVERY 3 WEEKS FOR THREE CYCLES
     Route: 065

REACTIONS (2)
  - Hyponatraemia [Unknown]
  - Metabolic encephalopathy [Fatal]
